FAERS Safety Report 5703883-8 (Version None)
Quarter: 2008Q2

REPORT INFORMATION
  Report Type: 
  Country: None (occurrence: None)
  Receive Date: 20080414
  Receipt Date: 20080403
  Transmission Date: 20081010
  Serious: Yes (Death)
  Sender: FDA-Public Use
  Company Number: FR-ELI_LILLY_AND_COMPANY-FR200803002203

PATIENT
  Age: 21 Year
  Sex: Female
  Weight: 60 kg

DRUGS (4)
  1. ZYPREXA [Suspect]
     Indication: BRIEF PSYCHOTIC DISORDER WITH MARKED STRESSORS
     Dosage: 10 MG, 2/D
     Route: 048
     Dates: start: 20080220
  2. TERCIAN [Concomitant]
     Indication: BRIEF PSYCHOTIC DISORDER WITH MARKED STRESSORS
     Dosage: 25 MG, 2/D
     Route: 048
     Dates: start: 20080223
  3. LOXAPAC [Concomitant]
     Indication: BRIEF PSYCHOTIC DISORDER WITH MARKED STRESSORS
     Dosage: UNK, UNK
     Route: 048
  4. RIVOTRIL [Concomitant]
     Indication: BRIEF PSYCHOTIC DISORDER WITH MARKED STRESSORS
     Route: 048

REACTIONS (1)
  - DEATH [None]
